FAERS Safety Report 6773099-5 (Version None)
Quarter: 2010Q2

REPORT INFORMATION
  Report Type: 
  Country: None (occurrence: None)
  Receive Date: 20100616
  Receipt Date: 20100607
  Transmission Date: 20101027
  Serious: Yes (Hospitalization, Other)
  Sender: FDA-Public Use
  Company Number: BR-BAYER-BR-2007-040389

PATIENT
  Age: 49 Year
  Sex: Female

DRUGS (8)
  1. BETAFERON [Suspect]
     Indication: MULTIPLE SCLEROSIS
     Dosage: TOTAL DAILY DOSE: 8 MIU
     Route: 058
  2. BETAFERON [Suspect]
     Dosage: TOTAL DAILY DOSE: 8 MIU
     Route: 058
     Dates: start: 19930101
  3. SOLU-MEDROL [Suspect]
  4. AVONEX [Suspect]
  5. REBIF [Suspect]
  6. GLIBENCLAMIDE [Concomitant]
     Dosage: 2 TAB(S), UNK
     Route: 048
  7. UNSPECIFIED DRUG [Concomitant]
     Indication: CARDIAC DISORDER
     Dosage: UNK, UNK
  8. TYLENOL [Concomitant]
     Route: 048
     Dates: start: 19930101

REACTIONS (36)
  - ABDOMINAL PAIN UPPER [None]
  - ACUTE MYOCARDIAL INFARCTION [None]
  - BENIGN NEOPLASM OF THYROID GLAND [None]
  - CATARACT [None]
  - CHEST PAIN [None]
  - COORDINATION ABNORMAL [None]
  - DIZZINESS [None]
  - DYSARTHRIA [None]
  - ERYTHEMA [None]
  - FACE INJURY [None]
  - FALL [None]
  - FATIGUE [None]
  - GAIT DISTURBANCE [None]
  - HALLUCINATION [None]
  - INFLUENZA [None]
  - INJECTION SITE INFLAMMATION [None]
  - INJECTION SITE PAIN [None]
  - INJURY [None]
  - ISCHAEMIA [None]
  - MOBILITY DECREASED [None]
  - MULTIPLE SCLEROSIS [None]
  - MULTIPLE SCLEROSIS RELAPSE [None]
  - MUSCLE SWELLING [None]
  - MYALGIA [None]
  - PAIN [None]
  - PALLOR [None]
  - PETIT MAL EPILEPSY [None]
  - PRESYNCOPE [None]
  - PYREXIA [None]
  - REFLEXES ABNORMAL [None]
  - SWELLING [None]
  - THYROID NEOPLASM [None]
  - TREMOR [None]
  - VISUAL FIELD DEFECT [None]
  - VISUAL IMPAIRMENT [None]
  - VOMITING [None]
